FAERS Safety Report 9787947 (Version 1)
Quarter: 2013Q4

REPORT INFORMATION
  Report Type: Not Available
  Country: IE (occurrence: IE)
  Receive Date: 20131230
  Receipt Date: 20131230
  Transmission Date: 20140711
  Serious: Yes (Other)
  Sender: FDA-Public Use
  Company Number: IE-ASTELLAS-2013EU011326

PATIENT
  Age: 92 Year
  Sex: Female

DRUGS (9)
  1. BETMIGA [Suspect]
     Indication: NOCTURIA
     Dosage: 50 MG, UNKNOWN/D
     Route: 048
     Dates: start: 20131112, end: 20131204
  2. ASPIRIN [Concomitant]
     Dosage: 75 MG, UNKNOWN/D
     Route: 065
  3. SOLPADEINE                         /00116401/ [Concomitant]
     Dosage: 2 DF, QID
     Route: 065
  4. MOVICOL                            /01625101/ [Concomitant]
     Dosage: UNK
     Route: 065
  5. ELTROXIN [Concomitant]
     Dosage: 100 UG, UID/QD
     Route: 048
  6. LIPITOR [Concomitant]
     Dosage: 20 MG, UID/QD
     Route: 048
  7. AMLIST [Concomitant]
     Dosage: 5 MG, UID/QD
     Route: 065
  8. TEVETEN                            /01347302/ [Concomitant]
     Dosage: 400 MG, UID/QD
     Route: 048
  9. STILNOCT [Concomitant]
     Dosage: 5 MG, UNKNOWN/D
     Route: 065

REACTIONS (2)
  - Atrial flutter [Not Recovered/Not Resolved]
  - Atrial fibrillation [Not Recovered/Not Resolved]
